FAERS Safety Report 23350708 (Version 3)
Quarter: 2024Q2

REPORT INFORMATION
  Report Type: Report from Study
  Country: UY (occurrence: UY)
  Receive Date: 20231229
  Receipt Date: 20240606
  Transmission Date: 20240716
  Serious: Yes (Hospitalization, Other)
  Sender: FDA-Public Use
  Company Number: UY-JNJFOC-20231048551

PATIENT
  Age: 76 Year
  Sex: Female
  Weight: 90 kg

DRUGS (1)
  1. SIMPONI [Suspect]
     Active Substance: GOLIMUMAB
     Indication: Rheumatoid arthritis
     Route: 058
     Dates: start: 20230226

REACTIONS (9)
  - Rheumatoid arthritis [Not Recovered/Not Resolved]
  - Accident [Recovering/Resolving]
  - Femur fracture [Recovering/Resolving]
  - Hip fracture [Recovering/Resolving]
  - Surgery [Unknown]
  - Bone disorder [Recovering/Resolving]
  - Muscular weakness [Recovering/Resolving]
  - Walking aid user [Unknown]
  - Influenza [Unknown]

NARRATIVE: CASE EVENT DATE: 20231001
